FAERS Safety Report 14296708 (Version 2)
Quarter: 2018Q1

REPORT INFORMATION
  Report Type: Spontaneous
  Country: JP (occurrence: JP)
  Receive Date: 20171218
  Receipt Date: 20180212
  Transmission Date: 20180509
  Serious: Yes (Other)
  Sender: FDA-Public Use
  Company Number: JP-PFIZER INC-2017534614

PATIENT
  Age: 64 Year
  Sex: Male
  Weight: 59 kg

DRUGS (12)
  1. LYRICA [Suspect]
     Active Substance: PREGABALIN
     Dosage: 450 MG, DAILY
     Route: 048
     Dates: start: 20170602
  2. ONETRAM [Suspect]
     Active Substance: TRAMADOL HYDROCHLORIDE
     Indication: PAIN
     Dosage: 100 MG, DAILY
     Route: 048
     Dates: start: 20170209
  3. ONETRAM [Suspect]
     Active Substance: TRAMADOL HYDROCHLORIDE
     Dosage: 200 MG, DAILY
     Route: 048
     Dates: start: 20170309
  4. LYRICA [Suspect]
     Active Substance: PREGABALIN
     Dosage: 225 MG, DAILY
     Route: 048
     Dates: start: 20170113
  5. LYRICA [Suspect]
     Active Substance: PREGABALIN
     Dosage: 300 MG, DAILY
     Route: 048
     Dates: start: 20170202
  6. LYRICA [Suspect]
     Active Substance: PREGABALIN
     Dosage: 300 MG, DAILY
     Route: 048
     Dates: start: 20170804, end: 20171213
  7. KEISHIKAJUTSUBUTO [Suspect]
     Active Substance: HERBALS
     Indication: NEURALGIA
     Dosage: 7.5 G, DAILY
     Route: 048
     Dates: start: 20170202, end: 20170620
  8. LYRICA [Suspect]
     Active Substance: PREGABALIN
     Indication: POST HERPETIC NEURALGIA
     Dosage: 75 MG, DAILY
     Route: 048
     Dates: start: 20161227
  9. TRAMAL [Suspect]
     Active Substance: TRAMADOL
     Indication: PAIN
     Dosage: 50 MG, DAILY
     Route: 048
     Dates: start: 20170202, end: 20170208
  10. ONETRAM [Suspect]
     Active Substance: TRAMADOL HYDROCHLORIDE
     Dosage: 100 MG, DAILY
     Route: 048
     Dates: start: 20170324
  11. LYRICA [Suspect]
     Active Substance: PREGABALIN
     Indication: NEURALGIA
     Dosage: 150 MG, DAILY
     Route: 048
     Dates: start: 20170104
  12. LYRICA [Suspect]
     Active Substance: PREGABALIN
     Dosage: 300 MG, DAILY
     Route: 048
     Dates: start: 20170616, end: 20170803

REACTIONS (2)
  - Interstitial lung disease [Not Recovered/Not Resolved]
  - Paralysis recurrent laryngeal nerve [Not Recovered/Not Resolved]

NARRATIVE: CASE EVENT DATE: 201712
